FAERS Safety Report 15632619 (Version 1)
Quarter: 2018Q4

REPORT INFORMATION
  Report Type: Spontaneous
  Country: US (occurrence: US)
  Receive Date: 20181119
  Receipt Date: 20181119
  Transmission Date: 20190205
  Serious: Yes (Other)
  Sender: FDA-Public Use
  Company Number: US-IMPAX LABORATORIES, LLC-2018-IPXL-03633

PATIENT
  Age: 78 Year
  Sex: Male

DRUGS (3)
  1. LUPRON [Suspect]
     Active Substance: LEUPROLIDE ACETATE
     Indication: PROSTATE CANCER STAGE IV
     Dosage: UNK
     Route: 065
  2. LUPRON [Suspect]
     Active Substance: LEUPROLIDE ACETATE
     Dosage: UNK, SECOND DOSE
     Route: 065
     Dates: start: 20181030
  3. RYTARY [Suspect]
     Active Substance: CARBIDOPA\LEVODOPA
     Indication: PRODUCT USED FOR UNKNOWN INDICATION
     Dosage: 61.25/245MG ONE CAPSULE, FIVE TIMES DAILY
     Route: 065
     Dates: start: 20181020, end: 20181101

REACTIONS (5)
  - Blood pressure increased [Recovered/Resolved]
  - Insomnia [Recovered/Resolved]
  - Hallucination [Recovered/Resolved]
  - Asthenia [Recovered/Resolved]
  - Constipation [Not Recovered/Not Resolved]

NARRATIVE: CASE EVENT DATE: 2018
